FAERS Safety Report 5514063-3 (Version None)
Quarter: 2007Q4

REPORT INFORMATION
  Report Type: 
  Country: None (occurrence: None)
  Receive Date: 20071109
  Receipt Date: 20071109
  Transmission Date: 20080405
  Serious: Yes (Hospitalization)
  Sender: FDA-Public Use
  Company Number: None

PATIENT
  Age: 52 Year
  Sex: Female
  Weight: 54.4316 kg

DRUGS (1)
  1. TRIAMCINOLONE [Suspect]
     Indication: PSORIASIS
     Dosage: 2X/DAY OR AS NEEDS TOP
     Route: 061

REACTIONS (1)
  - DRUG ADMINISTERED AT INAPPROPRIATE SITE [None]
